FAERS Safety Report 9278569 (Version 1)
Quarter: 2013Q2

REPORT INFORMATION
  Report Type: Spontaneous
  Country: US (occurrence: None)
  Receive Date: 20130506
  Receipt Date: 20130506
  Transmission Date: 20140414
  Serious: Yes (Other)
  Sender: FDA-Public Use
  Company Number: None

PATIENT
  Age: 82 Year
  Sex: Male
  Weight: 99.79 kg

DRUGS (1)
  1. ARICEPT [Suspect]
     Dates: start: 20130308, end: 20130320

REACTIONS (4)
  - Abnormal behaviour [None]
  - Agitation [None]
  - Disorientation [None]
  - Mental impairment [None]
